FAERS Safety Report 8971695 (Version 2)
Quarter: 2013Q4

REPORT INFORMATION
  Report Type: Spontaneous
  Country: JP (occurrence: JP)
  Receive Date: 20121217
  Receipt Date: 20131108
  Transmission Date: 20140711
  Serious: Yes (Other)
  Sender: FDA-Public Use
  Company Number: JP-TEVA-375588USA

PATIENT
  Age: 69 Year
  Sex: Female

DRUGS (10)
  1. BENDAMUSTINE [Suspect]
     Indication: B-CELL LYMPHOMA
     Route: 042
     Dates: start: 20120309, end: 20120310
  2. BENDAMUSTINE [Suspect]
     Route: 042
     Dates: start: 20120330, end: 20120331
  3. BENDAMUSTINE [Suspect]
     Route: 042
     Dates: start: 20120420, end: 20120421
  4. BENDAMUSTINE [Suspect]
     Route: 042
     Dates: start: 20120511, end: 20120512
  5. BENDAMUSTINE [Suspect]
     Route: 042
     Dates: start: 20120615, end: 20120616
  6. RITUXIMAB [Concomitant]
     Indication: B-CELL LYMPHOMA
     Dates: start: 20120308
  7. RITUXIMAB [Concomitant]
     Dates: start: 20120329
  8. RITUXIMAB [Concomitant]
     Dates: start: 20120419
  9. RITUXIMAB [Concomitant]
     Dates: start: 20120510
  10. RITUXIMAB [Concomitant]
     Dates: start: 20120607

REACTIONS (2)
  - Vasculitis [Recovered/Resolved]
  - Lymphocyte count decreased [Recovered/Resolved]
